FAERS Safety Report 7287623-X (Version None)
Quarter: 2011Q1

REPORT INFORMATION
  Report Type: 
  Country: None (occurrence: None)
  Receive Date: 20110211
  Receipt Date: 20110202
  Transmission Date: 20110831
  Serious: Yes (Other)
  Sender: FDA-Public Use
  Company Number: GB-SANOFI-AVENTIS-2011SA007264

PATIENT

DRUGS (1)
  1. ARAVA [Suspect]

REACTIONS (1)
  - CEREBROVASCULAR ACCIDENT [None]
